FAERS Safety Report 17814240 (Version 2)
Quarter: 2020Q2

REPORT INFORMATION
  Report Type: Spontaneous
  Country: BR (occurrence: BR)
  Receive Date: 20200521
  Receipt Date: 20200601
  Transmission Date: 20200714
  Serious: Yes (Other)
  Sender: FDA-Public Use
  Company Number: BR-ACTELION-A-NJ2020-205431

PATIENT
  Sex: Female

DRUGS (4)
  1. ILOPROST. [Suspect]
     Active Substance: ILOPROST
     Indication: PULMONARY ARTERIAL HYPERTENSION
     Dosage: 10 MCG
     Route: 055
  2. BOSENTANA [BOSENTAN MONOHYDRATE] [Concomitant]
  3. ILOPROST. [Suspect]
     Active Substance: ILOPROST
     Dosage: 10 UNK
     Route: 055
  4. SILDENAFIL. [Concomitant]
     Active Substance: SILDENAFIL

REACTIONS (1)
  - Nasal obstruction [Unknown]
